FAERS Safety Report 25745582 (Version 1)
Quarter: 2025Q3

REPORT INFORMATION
  Report Type: Spontaneous
  Country: GB (occurrence: GB)
  Receive Date: 20250901
  Receipt Date: 20250901
  Transmission Date: 20251021
  Serious: Yes (Other)
  Sender: TEVA
  Company Number: None

PATIENT
  Age: 28 Year
  Sex: Female

DRUGS (3)
  1. DOXYCYCLINE [Suspect]
     Active Substance: DOXYCYCLINE
     Indication: Acne
     Dosage: DAILY DOSAGE: 100MG
     Route: 065
     Dates: start: 202507
  2. LAMOTRIGINE [Concomitant]
     Active Substance: LAMOTRIGINE
     Indication: Epilepsy
  3. LEVETIRACETAM [Concomitant]
     Active Substance: LEVETIRACETAM
     Indication: Epilepsy

REACTIONS (6)
  - Anxiety [Not Recovered/Not Resolved]
  - Thinking abnormal [Unknown]
  - Somnambulism [Unknown]
  - Sensory disturbance [Unknown]
  - Pruritus [Not Recovered/Not Resolved]
  - Negative thoughts [Unknown]

NARRATIVE: CASE EVENT DATE: 20250701
